FAERS Safety Report 13088837 (Version 1)
Quarter: 2016Q4

REPORT INFORMATION
  Report Type: Spontaneous
  Country: US (occurrence: US)
  Receive Date: 20161231
  Receipt Date: 20161231
  Transmission Date: 20170207
  Serious: Yes (Life-Threatening, Hospitalization, Other)
  Sender: FDA-Public Use
  Company Number: None

PATIENT
  Age: 34 Year
  Sex: Female
  Weight: 76.5 kg

DRUGS (2)
  1. ABILIFY [Concomitant]
     Active Substance: ARIPIPRAZOLE
  2. TOPAMAX [Suspect]
     Active Substance: TOPIRAMATE
     Indication: BIPOLAR I DISORDER
     Dates: start: 20140307

REACTIONS (2)
  - Hallucinations, mixed [None]
  - Presyncope [None]

NARRATIVE: CASE EVENT DATE: 20140410
